FAERS Safety Report 4949435-9 (Version None)
Quarter: 2006Q1

REPORT INFORMATION
  Report Type: 
  Country: None (occurrence: None)
  Receive Date: 20060315
  Receipt Date: 20060306
  Transmission Date: 20060701
  Serious: Yes (Hospitalization, Other)
  Sender: FDA-Public Use
  Company Number: 2006033332

PATIENT
  Sex: Female
  Weight: 117.9352 kg

DRUGS (16)
  1. NEURONTIN [Suspect]
     Indication: NEUROPATHY
     Dosage: SEE IMAGE
     Route: 065
     Dates: start: 20060101
  2. MIDODRINE HYDROCHLORIDE [Suspect]
     Indication: BLOOD PRESSURE
     Dosage: UNKNOWN
     Route: 065
  3. PHENERGAN (PROMETHAZINE HYDROCHLORIDE) [Concomitant]
  4. METHADONE HCL [Concomitant]
  5. DEMEROL [Concomitant]
  6. HYOSCYAMINE (HYOCYAMINE) [Concomitant]
  7. ALDACTONE [Concomitant]
  8. KLONOPIN [Concomitant]
  9. ETHINYLESTRADIOL W/NORETHINDRONE (ETHINYLESTRADIOL, NORETHISTERONE) [Concomitant]
  10. DILANTIN [Concomitant]
  11. FUROSEMIDE [Concomitant]
  12. CARAFATE [Concomitant]
  13. ZYRTEC [Concomitant]
  14. BENADRYL [Concomitant]
  15. LACTULOSE [Concomitant]
  16. MIRALAX [Concomitant]

REACTIONS (20)
  - ABDOMINAL PAIN UPPER [None]
  - BLOOD PRESSURE DECREASED [None]
  - DEPRESSED LEVEL OF CONSCIOUSNESS [None]
  - DIZZINESS [None]
  - DRY MOUTH [None]
  - DYSARTHRIA [None]
  - FLUID RETENTION [None]
  - HYPOAESTHESIA [None]
  - INFLAMMATION [None]
  - LOSS OF CONSCIOUSNESS [None]
  - NAUSEA [None]
  - PAIN IN EXTREMITY [None]
  - PARAESTHESIA [None]
  - PNEUMONIA [None]
  - POST PROCEDURAL COMPLICATION [None]
  - RETCHING [None]
  - ROAD TRAFFIC ACCIDENT [None]
  - SLUGGISHNESS [None]
  - UNEVALUABLE EVENT [None]
  - VOMITING [None]
